FAERS Safety Report 6414496-7 (Version None)
Quarter: 2009Q4

REPORT INFORMATION
  Report Type: 
  Country: None (occurrence: None)
  Receive Date: 20091026
  Receipt Date: 20091013
  Transmission Date: 20100525
  Serious: Yes (Hospitalization, Other)
  Sender: FDA-Public Use
  Company Number: GB-ELI_LILLY_AND_COMPANY-GB200910002723

PATIENT
  Sex: Male

DRUGS (7)
  1. ZYPREXA [Suspect]
     Dosage: UNK, UNKNOWN
  2. CHLORPROMAZINE [Concomitant]
     Dosage: UNK, UNKNOWN
  3. CLOZARIL [Concomitant]
     Dosage: UNK, UNKNOWN
     Dates: start: 20020513, end: 20071115
  4. CLOZARIL [Concomitant]
     Dosage: 900 MG, UNK
     Dates: start: 20090523
  5. DIAZEPAM [Concomitant]
     Dosage: UNK, UNKNOWN
  6. VENLAFAXINE [Concomitant]
     Dosage: UNK, UNKNOWN
  7. ALCOHOL [Concomitant]
     Dosage: UNK, UNKNOWN

REACTIONS (4)
  - INSOMNIA [None]
  - PARANOIA [None]
  - SUICIDAL IDEATION [None]
  - THINKING ABNORMAL [None]
